FAERS Safety Report 8153946-5 (Version None)
Quarter: 2012Q1

REPORT INFORMATION
  Report Type: 
  Country: None (occurrence: None)
  Receive Date: 20120221
  Receipt Date: 20120221
  Transmission Date: 20120608
  Serious: Yes (Hospitalization)
  Sender: FDA-Public Use
  Company Number: None

PATIENT
  Sex: Female

DRUGS (1)
  1. LEVOFLOXACIN [Suspect]
     Dosage: 750 MG
     Route: 048
     Dates: start: 20120130, end: 20120131

REACTIONS (2)
  - TACHYCARDIA [None]
  - ELECTROCARDIOGRAM QT PROLONGED [None]
